FAERS Safety Report 8524921 (Version 3)
Quarter: 2013Q1

REPORT INFORMATION
  Report Type: Spontaneous
  Country: DK (occurrence: None)
  Receive Date: 20120413
  Receipt Date: 20121116
  Transmission Date: 20140127
  Serious: Yes (Other)
  Sender: FDA-Public Use
  Company Number: 2012MA004446

PATIENT
  Age: 38 Year
  Sex: Male

DRUGS (20)
  1. MIRTAZAPINE [Suspect]
     Indication: DEPRESSED MOOD
     Route: 048
     Dates: start: 20120104
  2. MIRTAZAPINE [Suspect]
     Indication: DEPRESSED MOOD
     Route: 048
     Dates: start: 20120104
  3. FLUOXETINE [Concomitant]
  4. FLUOXETINE HCL [Concomitant]
  5. CIMETIDINE [Concomitant]
  6. CETIRIZINE [Concomitant]
  7. CEPHALEXIN [Concomitant]
  8. DICLOFENAC [Concomitant]
  9. ZIMOVANE [Concomitant]
  10. BENZYDAMINE [Concomitant]
  11. CO-AMOXICLAV [Concomitant]
  12. ERYTHROMYCIN [Concomitant]
  13. PENICILLIN [Concomitant]
  14. PHENOXYMETHYLPENICILLIN [Concomitant]
  15. FLUCLOXACILLIN [Concomitant]
  16. FLUPENTIXOL [Concomitant]
  17. PROPRANOLOL [Concomitant]
  18. LORAZEPAM [Concomitant]
  19. ZOPICLONE [Concomitant]
  20. FLUOXETINE [Concomitant]

REACTIONS (3)
  - Irritability [None]
  - Confusional state [None]
  - Paranoia [None]
